FAERS Safety Report 6370094-5 (Version None)
Quarter: 2009Q3

REPORT INFORMATION
  Report Type: 
  Country: None (occurrence: None)
  Receive Date: 20090923
  Receipt Date: 20070523
  Transmission Date: 20100115
  Serious: Yes (Disabling)
  Sender: FDA-Public Use
  Company Number: US-ASTRAZENECA-2006UW21395

PATIENT
  Sex: Female
  Weight: 75.3 kg

DRUGS (17)
  1. SEROQUEL [Suspect]
     Route: 048
     Dates: start: 20041220
  2. SEROQUEL [Suspect]
     Dosage: 100 - 200 MG
     Route: 048
     Dates: start: 20050404
  3. ABILIFY [Concomitant]
  4. RISPERDAL [Concomitant]
  5. ZYPREXA [Concomitant]
  6. XANAX [Concomitant]
  7. LEXAPRO [Concomitant]
  8. PERCOCET [Concomitant]
  9. AMITRIPTYLINE [Concomitant]
  10. TRAZODONE [Concomitant]
  11. ARICEPT [Concomitant]
  12. AMBIEN [Concomitant]
  13. SUBOXONE [Concomitant]
  14. PRILOSEC [Concomitant]
  15. PREMARIN [Concomitant]
  16. LEVOXYL [Concomitant]
  17. XOPENEX [Concomitant]

REACTIONS (2)
  - DIABETES MELLITUS [None]
  - HYPERGLYCAEMIA [None]
